FAERS Safety Report 6480738-5 (Version None)
Quarter: 2009Q4

REPORT INFORMATION
  Report Type: 
  Country: None (occurrence: None)
  Receive Date: 20091208
  Receipt Date: 20091123
  Transmission Date: 20100525
  Serious: Yes (Other)
  Sender: FDA-Public Use
  Company Number: US-SANOFI-AVENTIS-2009SA005731

PATIENT
  Age: 54 Year
  Sex: Male

DRUGS (4)
  1. LANTUS [Suspect]
     Dosage: DOSE:85 UNIT(S)
     Route: 058
     Dates: start: 20060101
  2. OPTICLICK [Suspect]
     Dates: start: 20060101
  3. APIDRA [Suspect]
     Route: 058
     Dates: start: 20080101
  4. ANALGESICS NOS [Suspect]
     Route: 065

REACTIONS (1)
  - RENAL CANCER [None]
